FAERS Safety Report 4980432-3 (Version None)
Quarter: 2006Q2

REPORT INFORMATION
  Report Type: 
  Country: None (occurrence: None)
  Receive Date: 20060424
  Receipt Date: 20060412
  Transmission Date: 20061013
  Serious: Yes (Hospitalization)
  Sender: FDA-Public Use
  Company Number: GB-GLAXOSMITHKLINE-B0420259A

PATIENT
  Age: 36 Year
  Sex: Male
  Weight: 65 kg

DRUGS (3)
  1. PAROXETINE HCL [Suspect]
     Indication: AGITATION
     Dosage: 20MG PER DAY
     Route: 065
  2. ST JOHNS WORT [Suspect]
     Indication: DEPRESSION
     Route: 048
  3. KALMS [Concomitant]
     Route: 065

REACTIONS (4)
  - ELEVATED MOOD [None]
  - HYPOMANIA [None]
  - PERSECUTORY DELUSION [None]
  - PSYCHOTIC DISORDER [None]
